FAERS Safety Report 4411454-9 (Version None)
Quarter: 2004Q3

REPORT INFORMATION
  Report Type: 
  Country: None (occurrence: None)
  Receive Date: 20040727
  Receipt Date: 20040723
  Transmission Date: 20050211
  Serious: Yes (Hospitalization)
  Sender: FDA-Public Use
  Company Number: A044-002-005117

PATIENT
  Age: 61 Year
  Sex: Male

DRUGS (4)
  1. ARICEPT [Suspect]
     Indication: DEMENTIA ALZHEIMER'S TYPE
     Dosage: ORAL
     Route: 048
  2. ARICEPT [Suspect]
     Indication: VASCULAR DEMENTIA
     Dosage: ORAL
     Route: 048
  3. ENALAPRIL MALEATE [Concomitant]
  4. ASPIRIN [Concomitant]

REACTIONS (4)
  - CARDIAC ARREST [None]
  - CIRCULATORY COLLAPSE [None]
  - COLD SWEAT [None]
  - PALLOR [None]
